FAERS Safety Report 7347433-1 (Version None)
Quarter: 2011Q1

REPORT INFORMATION
  Report Type: 
  Country: None (occurrence: None)
  Receive Date: 20110311
  Receipt Date: 20110228
  Transmission Date: 20110831
  Serious: Yes (Hospitalization)
  Sender: FDA-Public Use
  Company Number: PHHY2011US17012

PATIENT
  Sex: Female
  Weight: 61.69 kg

DRUGS (1)
  1. EXJADE [Suspect]
     Indication: MYELODYSPLASTIC SYNDROME
     Dosage: 1375 MG, DAILY
     Route: 048
     Dates: start: 20080311

REACTIONS (2)
  - FALL [None]
  - LOWER LIMB FRACTURE [None]
